FAERS Safety Report 6095918-0 (Version None)
Quarter: 2009Q1

REPORT INFORMATION
  Report Type: 
  Country: None (occurrence: None)
  Receive Date: 20090227
  Receipt Date: 20080721
  Transmission Date: 20090719
  Serious: No
  Sender: FDA-Public Use
  Company Number: A0737956A

PATIENT
  Age: 36 Year
  Sex: Female

DRUGS (3)
  1. LAMICTAL [Suspect]
     Dosage: 100MG PER DAY
     Route: 048
     Dates: start: 20071101
  2. YAZ [Suspect]
     Dosage: 1TAB PER DAY
     Route: 048
     Dates: start: 20080301
  3. EFFEXOR XR [Concomitant]

REACTIONS (3)
  - MENSTRUATION IRREGULAR [None]
  - MOOD SWINGS [None]
  - PAIN IN EXTREMITY [None]
